FAERS Safety Report 19062965 (Version 4)
Quarter: 2022Q1

REPORT INFORMATION
  Report Type: Spontaneous
  Country: US (occurrence: US)
  Receive Date: 20210326
  Receipt Date: 20220309
  Transmission Date: 20220423
  Serious: Yes (Hospitalization, Congenital Anomaly, Other)
  Sender: FDA-Public Use
  Company Number: US-SUNOVION-2021SUN001049

PATIENT
  Sex: Male
  Weight: 2.18 kg

DRUGS (6)
  1. LATUDA [Suspect]
     Active Substance: LURASIDONE HYDROCHLORIDE
     Dosage: 120 MG, HS
     Route: 064
     Dates: start: 2013
  2. LATUDA [Suspect]
     Active Substance: LURASIDONE HYDROCHLORIDE
     Dosage: 80 MG
     Route: 064
  3. LATUDA [Suspect]
     Active Substance: LURASIDONE HYDROCHLORIDE
     Dosage: UNK
     Route: 063
  4. PRISTIQ EXTENDED-RELEASE [Suspect]
     Active Substance: DESVENLAFAXINE SUCCINATE
     Dosage: 75 MG (1 50MG TABLET AND 1 25MG TABLET,)
  5. PRISTIQ EXTENDED-RELEASE [Suspect]
     Active Substance: DESVENLAFAXINE SUCCINATE
     Dosage: UNK
     Route: 063
  6. WELLBUTRIN [Concomitant]
     Active Substance: BUPROPION HYDROCHLORIDE
     Dosage: UNK

REACTIONS (23)
  - Heart rate irregular [Unknown]
  - Bradycardia [Recovered/Resolved]
  - Tremor [Recovered/Resolved]
  - Congenital anomaly of inner ear [Unknown]
  - Foetal growth restriction [Unknown]
  - Deafness bilateral [Unknown]
  - Gross motor delay [Unknown]
  - Body temperature fluctuation [Unknown]
  - Jaundice neonatal [Unknown]
  - Growth disorder [Unknown]
  - Infantile colic [Unknown]
  - Premature baby [Unknown]
  - Gastrooesophageal reflux disease [Unknown]
  - Hypoacusis [Unknown]
  - Fine motor delay [Unknown]
  - Speech disorder developmental [Unknown]
  - Dyspnoea [Unknown]
  - Poor quality sleep [Unknown]
  - Feeling jittery [Unknown]
  - Lymphatic disorder [Unknown]
  - Foetal exposure during pregnancy [Unknown]
  - Exposure via breast milk [Unknown]
  - Low birth weight baby [None]
